FAERS Safety Report 10619582 (Version 1)
Quarter: 2014Q4

REPORT INFORMATION
  Report Type: Spontaneous
  Country: IT (occurrence: None)
  Receive Date: 20141128
  Receipt Date: 20141128
  Transmission Date: 20150529
  Serious: Yes (Hospitalization)
  Sender: FDA-Public Use
  Company Number: KAD201411-001536

PATIENT
  Age: 20 Year
  Sex: Female

DRUGS (4)
  1. RIBAVIRIN(RIBAVIRIN) [Suspect]
     Active Substance: RIBAVIRIN
     Indication: CHRONIC HEPATITIS C
     Route: 048
     Dates: start: 20130904, end: 20131029
  2. BMS 914143 (PEGINTERFERON LAMBDA-1A) [Suspect]
     Active Substance: PEGINTERFERON LAMBDA-1A
     Indication: CHRONIC HEPATITIS C
     Route: 058
     Dates: start: 20130904, end: 20131113
  3. PEGINTERFERON ALFA-2A [Suspect]
     Active Substance: PEGINTERFERON ALFA-2A
     Indication: CHRONIC HEPATITIS C
     Dates: start: 20130904, end: 20131113
  4. TELAPREVIR (TELAPREVIR) [Suspect]
     Active Substance: TELAPREVIR
     Indication: CHRONIC HEPATITIS C
     Route: 048
     Dates: start: 20130904, end: 20131118

REACTIONS (3)
  - Abdominal pain upper [None]
  - Amylase increased [None]
  - Lipase increased [None]

NARRATIVE: CASE EVENT DATE: 20131118
